FAERS Safety Report 15061845 (Version 2)
Quarter: 2018Q3

REPORT INFORMATION
  Report Type: Report from Study
  Country: GB (occurrence: GB)
  Receive Date: 20180625
  Receipt Date: 20180824
  Transmission Date: 20181010
  Serious: Yes (Death, Life-Threatening, Hospitalization)
  Sender: FDA-Public Use
  Company Number: GB-PFIZER INC-2018251925

PATIENT
  Age: 60 Year
  Sex: Male
  Weight: 70.8 kg

DRUGS (3)
  1. CICLOSPORIN [Suspect]
     Active Substance: CYCLOSPORINE
     Indication: GRAFT VERSUS HOST DISEASE
     Dosage: 200 MG, 1X/DAY
     Route: 048
     Dates: start: 20180427
  2. METHYLPREDNISOLONE SODIUM SUCCINATE. [Suspect]
     Active Substance: METHYLPREDNISOLONE SODIUM SUCCINATE
     Indication: GRAFT VERSUS HOST DISEASE
     Dosage: 160 MG, 1X/DAY
     Route: 042
     Dates: start: 20180427
  3. CODEINE PHOSPHATE [Concomitant]
     Active Substance: CODEINE PHOSPHATE
     Indication: DIARRHOEA
     Dosage: 30 MG, QD
     Route: 048
     Dates: start: 20180423

REACTIONS (2)
  - Sepsis [Not Recovered/Not Resolved]
  - Graft versus host disease [Fatal]

NARRATIVE: CASE EVENT DATE: 20180427
